FAERS Safety Report 5225836-9 (Version None)
Quarter: 2007Q1

REPORT INFORMATION
  Report Type: 
  Country: None (occurrence: None)
  Receive Date: 20070130
  Receipt Date: 20070130
  Transmission Date: 20070707
  Serious: Yes (Other)
  Sender: FDA-Public Use
  Company Number: None

PATIENT
  Age: 48 Year
  Sex: Female
  Weight: 63.5036 kg

DRUGS (2)
  1. AMBIEN CR [Suspect]
     Indication: INSOMNIA
     Dosage: 1 BEDTIME PO
     Route: 048
     Dates: start: 20061221, end: 20061225
  2. AMBIEN CR [Suspect]
     Indication: INSOMNIA
     Dosage: 1 BEDTIME PO
     Route: 048
     Dates: start: 20070115, end: 20070125

REACTIONS (10)
  - ANOREXIA [None]
  - ANXIETY [None]
  - DEPRESSION [None]
  - DRUG INEFFECTIVE [None]
  - INSOMNIA [None]
  - MENOPAUSAL SYMPTOMS [None]
  - PANIC ATTACK [None]
  - SUICIDAL IDEATION [None]
  - THINKING ABNORMAL [None]
  - WEIGHT DECREASED [None]
